FAERS Safety Report 12855072 (Version 2)
Quarter: 2016Q4

REPORT INFORMATION
  Report Type: Spontaneous
  Country: NL (occurrence: NL)
  Receive Date: 20161017
  Receipt Date: 20161017
  Transmission Date: 20170207
  Serious: Yes (Hospitalization)
  Sender: FDA-Public Use
  Company Number: NL-TEVA-700839ISR

PATIENT
  Age: 62 Year
  Sex: Male
  Weight: 110 kg

DRUGS (6)
  1. IRBESARTAN AURO 150 MG, FILM COATED TABLETS [Interacting]
     Active Substance: IRBESARTAN
     Indication: HYPERTENSION
     Dosage: 300 MILLIGRAM DAILY;
     Route: 048
     Dates: start: 201503
  2. GLICLAZIDE [Concomitant]
     Active Substance: GLICLAZIDE
     Dates: start: 2010
  3. HYDROCHLOROTHIAZIDE AUROBINDO 50 MG TABLET [Suspect]
     Active Substance: HYDROCHLOROTHIAZIDE
     Indication: HYPERTENSION
     Dosage: 25 MILLIGRAM DAILY;
     Route: 048
     Dates: start: 2013, end: 20160702
  4. TAMSULOSIN HCL AUROBINDO SUSTAINED RELEASE 0.4MG CAPSULES, HARD [Interacting]
     Active Substance: TAMSULOSIN
     Indication: RENAL COLIC
     Dosage: .4 MILLIGRAM DAILY;
     Route: 048
     Dates: start: 20160624
  5. BARNIDIPINE [Interacting]
     Active Substance: BARNIDIPINE
     Indication: HYPERTENSION
     Dosage: 20 MILLIGRAM DAILY;
     Route: 048
     Dates: start: 201605, end: 20160702
  6. METFORMINE [Concomitant]
     Active Substance: METFORMIN HYDROCHLORIDE
     Dates: start: 2010

REACTIONS (2)
  - Drug interaction [Recovered/Resolved]
  - Hypotension [Recovered/Resolved]

NARRATIVE: CASE EVENT DATE: 20160701
